FAERS Safety Report 6058222-2 (Version None)
Quarter: 2009Q1

REPORT INFORMATION
  Report Type: 
  Country: None (occurrence: None)
  Receive Date: 20090130
  Receipt Date: 20080618
  Transmission Date: 20090719
  Serious: Yes (Hospitalization)
  Sender: FDA-Public Use
  Company Number: US-JNJFOC-20080604845

PATIENT
  Sex: Female

DRUGS (6)
  1. LEVAQUIN [Suspect]
     Indication: INFECTION
     Route: 048
  2. DITROPAN XL [Concomitant]
     Indication: INCONTINENCE
     Route: 048
  3. PREDNISONE [Concomitant]
     Indication: ARTHROPOD BITE
     Route: 048
  4. LEVOTHYROXINE SODIUM [Concomitant]
     Indication: THYROID DISORDER
     Route: 048
  5. PHENERGAN HCL [Concomitant]
     Indication: ABDOMINAL PAIN UPPER
     Route: 048
  6. DONNATAL [Concomitant]
     Indication: ABDOMINAL PAIN UPPER
     Route: 048

REACTIONS (2)
  - DYSPNOEA [None]
  - FOREIGN BODY TRAUMA [None]
